FAERS Safety Report 19255103 (Version 2)
Quarter: 2021Q2

REPORT INFORMATION
  Report Type: Spontaneous
  Country: US (occurrence: US)
  Receive Date: 20210513
  Receipt Date: 20210621
  Transmission Date: 20210717
  Serious: No
  Sender: FDA-Public Use
  Company Number: US-ASTRAZENECA-2021A337108

PATIENT
  Age: 26065 Day
  Sex: Male
  Weight: 95.3 kg

DRUGS (1)
  1. BYDUREON [Suspect]
     Active Substance: EXENATIDE
     Indication: GLUCOSE TOLERANCE IMPAIRED
     Route: 058

REACTIONS (5)
  - Wrong technique in device usage process [Unknown]
  - Device delivery system issue [Unknown]
  - Injection site mass [Unknown]
  - Incorrect dose administered by device [Unknown]
  - Intentional device misuse [Unknown]

NARRATIVE: CASE EVENT DATE: 20210405
